FAERS Safety Report 8806016 (Version 2)
Quarter: 2012Q4

REPORT INFORMATION
  Report Type: Spontaneous
  Country: US (occurrence: None)
  Receive Date: 20120917
  Receipt Date: 20121005
  Transmission Date: 20130627
  Serious: Yes (Other)
  Sender: FDA-Public Use
  Company Number: ZYD-12-AE-195

PATIENT
  Age: 4 Year
  Sex: Male

DRUGS (8)
  1. LAMOTRIGINE [Suspect]
     Indication: EPILEPSY
  2. ZONISAMIDE [Suspect]
     Indication: EPILEPSY
  3. KETOGENIC [Suspect]
     Dates: start: 2007, end: 201108
  4. MIRALAX [Concomitant]
  5. CALCIUM [Concomitant]
  6. SELENIUM [Concomitant]
  7. MULTIVITAMINS [Concomitant]
  8. POTASSIUM CITRATE [Concomitant]

REACTIONS (4)
  - Atonic seizures [None]
  - Petit mal epilepsy [None]
  - Convulsion [None]
  - Failure to thrive [None]
